FAERS Safety Report 12922725 (Version 1)
Quarter: 2016Q4

REPORT INFORMATION
  Report Type: Spontaneous
  Country: US (occurrence: US)
  Receive Date: 20161108
  Receipt Date: 20161108
  Transmission Date: 20170207
  Serious: No
  Sender: FDA-Public Use
  Company Number: None

PATIENT
  Age: 28 Year
  Sex: Female
  Weight: 47.7 kg

DRUGS (1)
  1. RANITIDINE. [Suspect]
     Active Substance: RANITIDINE
     Indication: GASTROOESOPHAGEAL REFLUX DISEASE
     Dosage: ?          QUANTITY:24 TABLET(S);?
     Route: 048
     Dates: start: 20130901, end: 20161106

REACTIONS (3)
  - Economic problem [None]
  - Drug screen false positive [None]
  - Product label issue [None]

NARRATIVE: CASE EVENT DATE: 20161102
